FAERS Safety Report 6280281-2 (Version None)
Quarter: 2009Q3

REPORT INFORMATION
  Report Type: 
  Country: None (occurrence: None)
  Receive Date: 20090723
  Receipt Date: 20090715
  Transmission Date: 20100115
  Serious: Yes (Disabling)
  Sender: FDA-Public Use
  Company Number: FR-ASTRAZENECA-2009CG00991

PATIENT
  Age: 924 Month
  Sex: Male

DRUGS (8)
  1. ZOLADEX [Suspect]
     Indication: PROSTATE CANCER
     Route: 058
     Dates: start: 20090101, end: 20090401
  2. ZOLADEX [Suspect]
     Route: 058
     Dates: start: 20090301
  3. GLUCOPHAGE [Concomitant]
  4. XATRAL [Concomitant]
  5. GLUCOR [Concomitant]
  6. SPIRIVA [Concomitant]
  7. JOSIR [Concomitant]
  8. VASTAREL [Concomitant]

REACTIONS (1)
  - POLIOMYELITIS [None]
